FAERS Safety Report 4964613-0 (Version None)
Quarter: 2006Q2

REPORT INFORMATION
  Report Type: 
  Country: None (occurrence: None)
  Receive Date: 20060406
  Receipt Date: 20051123
  Transmission Date: 20061013
  Serious: Yes (Hospitalization)
  Sender: FDA-Public Use
  Company Number: US-MERCK-0511USA04085

PATIENT
  Age: 70 Year
  Sex: Female
  Weight: 107 kg

DRUGS (10)
  1. ULTRAM [Concomitant]
     Indication: PAIN
     Route: 065
     Dates: start: 20010525
  2. VERAPAMIL [Concomitant]
     Route: 065
     Dates: start: 19991117
  3. MAXZIDE [Concomitant]
     Indication: HYPERTENSION
     Route: 065
     Dates: start: 19991117
  4. MAXZIDE [Concomitant]
     Indication: OEDEMA
     Route: 065
     Dates: start: 19991117
  5. COUMADIN [Concomitant]
     Indication: ANTICOAGULANT THERAPY
     Route: 048
     Dates: start: 20010525
  6. CLARITIN [Concomitant]
     Indication: ANTIALLERGIC THERAPY
     Route: 048
     Dates: start: 20000929
  7. VIOXX [Suspect]
     Indication: OSTEOARTHRITIS
     Route: 048
     Dates: start: 20000107, end: 20010525
  8. VIOXX [Suspect]
     Route: 048
     Dates: start: 20010530, end: 20030207
  9. VIOXX [Suspect]
     Indication: LUMBAR RADICULOPATHY
     Route: 048
     Dates: start: 20000107, end: 20010525
  10. VIOXX [Suspect]
     Route: 048
     Dates: start: 20010530, end: 20030207

REACTIONS (31)
  - ASTHENIA [None]
  - ATRIAL FIBRILLATION [None]
  - BLOOD CHOLESTEROL INCREASED [None]
  - CHEST PAIN [None]
  - DIVERTICULUM INTESTINAL [None]
  - DIZZINESS [None]
  - DUODENAL ULCER [None]
  - DYSPNOEA [None]
  - FEMORAL BRUIT [None]
  - GASTRIC DISORDER [None]
  - GASTRIC ULCER [None]
  - GASTROINTESTINAL HAEMORRHAGE [None]
  - GASTROOESOPHAGEAL REFLUX DISEASE [None]
  - HEADACHE [None]
  - HYPERSENSITIVITY [None]
  - HYPOXIA [None]
  - IRON DEFICIENCY ANAEMIA [None]
  - LABYRINTHITIS [None]
  - MALAISE [None]
  - PERIPHERAL VASCULAR DISORDER [None]
  - PHLEBITIS [None]
  - POLYP [None]
  - PULMONARY EMBOLISM [None]
  - RENAL FAILURE ACUTE [None]
  - SPINAL COLUMN STENOSIS [None]
  - THROMBOPHLEBITIS SUPERFICIAL [None]
  - UPPER RESPIRATORY TRACT INFECTION [None]
  - VEIN PAIN [None]
  - VERTIGO POSITIONAL [None]
  - VULVOVAGINAL MYCOTIC INFECTION [None]
  - WOUND INFECTION [None]
